FAERS Safety Report 25086282 (Version 2)
Quarter: 2025Q1

REPORT INFORMATION
  Report Type: Spontaneous
  Country: FR (occurrence: FR)
  Receive Date: 20250317
  Receipt Date: 20250327
  Transmission Date: 20250409
  Serious: Yes (Hospitalization, Other)
  Sender: MYLAN
  Company Number: None

PATIENT
  Age: 71 Year
  Sex: Female

DRUGS (16)
  1. PREDNISONE [Suspect]
     Active Substance: PREDNISONE
     Indication: Opportunistic infection prophylaxis
     Dosage: 10 MILLIGRAM, QD (10 MILLIGRAM(S) IN THE MORNING)
  2. VALCYTE [Suspect]
     Active Substance: VALGANCICLOVIR HYDROCHLORIDE
     Indication: Renal transplant
     Dosage: 450 MILLIGRAM, Q3W (1350 MILLIGRAM, QW)
     Dates: start: 20241104, end: 20250116
  3. BACTRIM [Suspect]
     Active Substance: SULFAMETHOXAZOLE\TRIMETHOPRIM
     Indication: Opportunistic infection prophylaxis
     Dosage: 1 DOSAGE FORM, Q3W (3 DOSAGE FORM, QW)
     Dates: start: 20241104, end: 20250117
  4. CELLCEPT [Suspect]
     Active Substance: MYCOPHENOLATE MOFETIL
     Indication: Renal transplant
     Dosage: 1 GRAM, BID (2 GRAM, QD) (1GX2/D; 1 TABLET(S) AT 8AM, 1 TABLET(S) AT 8PM)
     Dates: start: 20241104, end: 20250116
  5. CELLCEPT [Suspect]
     Active Substance: MYCOPHENOLATE MOFETIL
  6. ENVARSUS XR [Concomitant]
     Active Substance: TACROLIMUS
  7. FOLIC ACID [Concomitant]
     Active Substance: FOLIC ACID
     Dosage: 1 DOSAGE FORM, QD (1 TABLET(S) MORNING)
  8. LEVEMIR [Concomitant]
     Active Substance: INSULIN DETEMIR
     Dosage: 8 INTERNATIONAL UNIT, QD (8 INTERNATIONAL UNIT(S) MORNING)
  9. REPAGLINIDE [Concomitant]
     Active Substance: REPAGLINIDE
     Dosage: 3 DOSAGE FORM, QD (1 TABLET(S) MORNING, 1 TABLET(S) NOON, 1 TABLET(S) EVENING)
  10. BISOPROLOL [Concomitant]
     Active Substance: BISOPROLOL
     Dosage: 1 DOSAGE FORM, QD (1 TABLET(S) MORNING FOR 30 DAY(S)
  11. ELIQUIS [Concomitant]
     Active Substance: APIXABAN
     Dosage: 1 DOSAGE FORM, BID (1 TABLET(S) MORNING, 1 TABLET(S) EVENING)
  12. FUROSEMIDE [Concomitant]
     Active Substance: FUROSEMIDE
     Dosage: 1 DOSAGE FORM, QD (1 TABLET(S) NOON FOR 30 DAY(S)
  13. ATORVASTATIN [Concomitant]
     Active Substance: ATORVASTATIN
     Dosage: UNK, QD (EVENING FOR 30 DAYS)
  14. LEVOTHYROXINE [Concomitant]
     Active Substance: LEVOTHYROXINE
     Dosage: 100 MICROGRAM, QD (100MCG CPR 1 TABLET(S) MORNING)
  15. LEVOTHYROXINE [Concomitant]
     Active Substance: LEVOTHYROXINE
     Dosage: 0.5 DOSAGE FORM, QD (25MCG OF 0.5 TABLET(S) MORNING)
  16. PANTOPRAZOLE [Concomitant]
     Active Substance: PANTOPRAZOLE
     Dosage: 1 DOSAGE FORM, QD (1 TABLET IN THE EVENING)

REACTIONS (2)
  - Leukopenia [Recovered/Resolved]
  - Renal abscess [Unknown]

NARRATIVE: CASE EVENT DATE: 20250110
